FAERS Safety Report 4680190-6 (Version None)
Quarter: 2005Q2

REPORT INFORMATION
  Report Type: 
  Country: None (occurrence: None)
  Receive Date: 20050602
  Receipt Date: 20050527
  Transmission Date: 20051028
  Serious: Yes (Death, Other)
  Sender: FDA-Public Use
  Company Number: PHEH2005US05997

PATIENT
  Age: 36 Year
  Sex: Female

DRUGS (1)
  1. ZOMETA [Suspect]
     Indication: BREAST CANCER METASTATIC

REACTIONS (2)
  - ASEPTIC NECROSIS BONE [None]
  - MALIGNANT NEOPLASM PROGRESSION [None]
